FAERS Safety Report 8298186 (Version 3)
Quarter: 2012Q4

REPORT INFORMATION
  Report Type: 
  Country: JP (occurrence: JP)
  Receive Date: 20111219
  Receipt Date: 20121123
  Transmission Date: 20130627
  Serious: Yes (Death, Life-Threatening, Hospitalization)
  Sender: FDA-Public Use
  Company Number: JP-JNJFOC-20111207465

PATIENT
  Age: 92 Year
  Sex: Female

DRUGS (11)
  1. TRAMCET [Suspect]
     Indication: PAIN
     Dosage: once a day
     Route: 048
     Dates: start: 20111206, end: 20111210
  2. NATRIX [Concomitant]
     Indication: HYPERTENSION
     Dosage: 1 per 1 day
     Route: 048
     Dates: start: 20110205, end: 20111211
  3. KERLONG [Concomitant]
     Indication: CARDIAC FAILURE
     Dosage: 1 per 1 day
     Route: 048
     Dates: start: 20000223, end: 20111211
  4. KERLONG [Concomitant]
     Indication: HYPERTENSION
     Dosage: 1 per 1 day
     Route: 048
     Dates: start: 20000223, end: 20111211
  5. TANATRIL [Concomitant]
     Indication: CARDIAC FAILURE
     Dosage: 1 per 1 day
     Route: 048
     Dates: start: 20000223, end: 20111211
  6. NORVASC [Concomitant]
     Indication: CARDIAC FAILURE
     Dosage: 1 per 1 day
     Route: 048
     Dates: start: 20000906, end: 20111211
  7. NORVASC [Concomitant]
     Indication: HYPERTENSION
     Dosage: 1 per 1 day
     Route: 048
     Dates: start: 20000906, end: 20111211
  8. LASIX [Concomitant]
     Indication: CARDIAC FAILURE
     Dosage: 1 per 1 day
     Route: 048
     Dates: start: 20090824, end: 20111211
  9. UNASYN-S [Concomitant]
     Dosage: 1 per 1 day
     Route: 041
     Dates: start: 20111212, end: 20111213
  10. PRIMPERAN [Concomitant]
     Dosage: 1 per 1 day
     Route: 048
     Dates: start: 20111206
  11. NEUROVITAN [Concomitant]
     Dosage: 1 per 1 day
     Route: 048
     Dates: start: 20111206

REACTIONS (2)
  - Multi-organ failure [Fatal]
  - Intestinal obstruction [Not Recovered/Not Resolved]
